FAERS Safety Report 8464149-9 (Version None)
Quarter: 2012Q2

REPORT INFORMATION
  Report Type: 
  Country: None (occurrence: None)
  Receive Date: 20120625
  Receipt Date: 20120612
  Transmission Date: 20120825
  Serious: No
  Sender: FDA-Public Use
  Company Number: US-ASTRAZENECA-2012SE24588

PATIENT
  Age: 58 Year
  Sex: Female
  Weight: 90.7 kg

DRUGS (5)
  1. ZYPREXA [Concomitant]
     Indication: ANXIETY
  2. LAMOTRIGINE [Concomitant]
     Indication: DEPRESSION
     Route: 048
     Dates: start: 20110606
  3. WELLBUTRIN [Concomitant]
     Indication: DEPRESSION
  4. CLONAZEPAM [Concomitant]
     Indication: ANXIETY
  5. SEROQUEL [Suspect]
     Indication: AFFECTIVE DISORDER
     Route: 048

REACTIONS (2)
  - NEUTROPENIA [None]
  - DRUG PRESCRIBING ERROR [None]
